FAERS Safety Report 6859161-7 (Version None)
Quarter: 2010Q3

REPORT INFORMATION
  Report Type: 
  Country: None (occurrence: None)
  Receive Date: 20100719
  Receipt Date: 20080222
  Transmission Date: 20110219
  Serious: No
  Sender: FDA-Public Use
  Company Number: US-PFIZER INC-2008018951

PATIENT
  Sex: Female
  Weight: 47.6 kg

DRUGS (8)
  1. CHANTIX [Suspect]
     Indication: SMOKING CESSATION THERAPY
     Dates: start: 20080207
  2. VITAMINS [Concomitant]
  3. LIDODERM [Concomitant]
  4. NEURONTIN [Concomitant]
  5. PERCOCET [Concomitant]
  6. TIZANIDINE HCL [Concomitant]
  7. AMITRIPTYLINE HYDROCHLORIDE [Concomitant]
  8. NICOTINE [Concomitant]
     Dates: start: 20071201, end: 20080101

REACTIONS (1)
  - NAUSEA [None]
